FAERS Safety Report 5445163-4 (Version None)
Quarter: 2007Q3

REPORT INFORMATION
  Report Type: 
  Country: None (occurrence: None)
  Receive Date: 20070906
  Receipt Date: 20070828
  Transmission Date: 20080115
  Serious: Yes (Hospitalization)
  Sender: FDA-Public Use
  Company Number: US-SANOFI-SYNTHELABO-A03200704897

PATIENT
  Sex: Male
  Weight: 80.27 kg

DRUGS (13)
  1. SENIOR MULTIVITAMIN [Concomitant]
     Route: 048
  2. ESTER C [Concomitant]
     Route: 048
  3. VITAMIN E [Concomitant]
     Route: 048
  4. PUMPKIN SEED OIL [Concomitant]
     Route: 048
  5. FLAXSEED OIL [Concomitant]
     Route: 048
  6. OMEGA 3-6-9 [Concomitant]
     Dosage: UNK
     Route: 048
     Dates: start: 20060101
  7. KLONOPIN [Concomitant]
     Dosage: .75 MG AT HS (VARYING DOSAGE)
     Route: 048
     Dates: start: 19980101
  8. TOPROL-XL [Concomitant]
     Route: 048
     Dates: start: 20030101
  9. ALTACE [Concomitant]
     Route: 048
     Dates: start: 20030101
  10. PLAVIX [Suspect]
     Indication: CEREBROVASCULAR ACCIDENT
     Route: 048
     Dates: start: 20010101
  11. FELODIPINE [Concomitant]
     Route: 048
     Dates: start: 20050101
  12. SIMVASTATIN [Concomitant]
     Route: 048
  13. LEVOTHYROXINE SODIUM [Concomitant]
     Route: 048
     Dates: start: 20030101

REACTIONS (4)
  - CONDITION AGGRAVATED [None]
  - DRUG INEFFECTIVE [None]
  - HELICOBACTER INFECTION [None]
  - PLATELET FUNCTION TEST ABNORMAL [None]
